FAERS Safety Report 7907122-9 (Version None)
Quarter: 2011Q4

REPORT INFORMATION
  Report Type: 
  Country: None (occurrence: None)
  Receive Date: 20111110
  Receipt Date: 20110603
  Transmission Date: 20120403
  Serious: No
  Sender: FDA-Public Use
  Company Number: US-ASTRAZENECA-2011SE34603

PATIENT
  Sex: Female

DRUGS (13)
  1. PROAIR HFA [Concomitant]
     Indication: DYSPNOEA
     Dosage: TWO PUFFS FOUR TIMES A DAY
  2. VITAMIN D2 [Concomitant]
     Dosage: 400 UNIT DAILY
  3. SYNTHROID [Concomitant]
     Dosage: SIX DAYS A WEEK
  4. CRESTOR [Concomitant]
     Route: 048
  5. AMBIEN [Concomitant]
     Indication: INSOMNIA
     Route: 048
  6. ECOTRIN LOW STRENGHT [Concomitant]
  7. MAGNESIUM [Concomitant]
     Route: 048
  8. AMBIEN [Concomitant]
     Route: 048
  9. ZITHROMAX [Concomitant]
     Route: 048
  10. METOPROLOL TARTRATE [Concomitant]
     Route: 048
  11. PROAIR HFA [Concomitant]
     Indication: WHEEZING
     Dosage: TWO PUFFS FOUR TIMES A DAY
  12. LISINOPRIL [Suspect]
     Route: 048
  13. FUROSEMIDE [Concomitant]

REACTIONS (4)
  - FATIGUE [None]
  - MUSCLE FATIGUE [None]
  - DRUG HYPERSENSITIVITY [None]
  - DIARRHOEA [None]
